FAERS Safety Report 13556977 (Version 1)
Quarter: 2017Q2

REPORT INFORMATION
  Report Type: Spontaneous
  Country: CH (occurrence: AT)
  Receive Date: 20170518
  Receipt Date: 20170518
  Transmission Date: 20170830
  Serious: Yes (Hospitalization)
  Sender: FDA-Public Use
  Company Number: CH-LPDUSPRD-20140808

PATIENT
  Age: 49 Year
  Sex: Male
  Weight: 92 kg

DRUGS (16)
  1. TRAMAL [Concomitant]
     Active Substance: TRAMADOL
     Dosage: 100 MG
     Route: 048
  2. CHOLESTAGEL [Concomitant]
     Active Substance: COLESEVELAM HYDROCHLORIDE
     Dosage: 625 MG
     Route: 058
  3. FOLSAN [Concomitant]
     Active Substance: FOLIC ACID
     Dosage: 5 MG
     Route: 048
  4. GLUCOSE 1-PHOSPHATE SODIUM [Concomitant]
     Dosage: SEE NARRATIVE FOR DOSING INFO.
  5. MONOFER [Suspect]
     Active Substance: IRON ISOMALTOSIDE 1000
     Dosage: 1 GM
     Route: 065
     Dates: start: 20120905
  6. ACTONEL [Concomitant]
     Active Substance: RISEDRONATE SODIUM
     Dosage: 35MG
     Route: 048
  7. ERYPO [Concomitant]
     Dosage: 40000 IE/ML (1IN 1WK)
     Route: 058
  8. GLADEM [Concomitant]
     Active Substance: SERTRALINE HYDROCHLORIDE
     Dosage: 50 MG
     Route: 048
  9. HUMIRA [Concomitant]
     Active Substance: ADALIMUMAB
     Dosage: 40 MG / WEEK
     Route: 058
  10. COLECALCIFEROL [Concomitant]
     Active Substance: CHOLECALCIFEROL
     Dosage: 1G+800IE
     Route: 048
  11. RECOMBINANT HUMAN ERYTHROPOIETIN [Suspect]
     Active Substance: ERYTHROPOIETIN
     Dosage: UNKNOWN
     Route: 065
  12. VENOFER [Suspect]
     Active Substance: IRON SUCROSE
     Dosage: SEE NARRATIVE FOR DOSING INFO.
     Route: 042
  13. ERYCYTOL [Concomitant]
     Dosage: 1 IN 1 TOTAL
     Route: 048
  14. INFLIXIMAB [Concomitant]
     Active Substance: INFLIXIMAB
     Dosage: UNKNOWN
     Route: 065
  15. FERINJECT [Suspect]
     Active Substance: FERRIC CARBOXYMALTOSE
     Dosage: SEE NARRATIVE FOR DOSING INFO.
     Route: 042
  16. AZATHIOPRINE. [Concomitant]
     Active Substance: AZATHIOPRINE
     Dosage: 150 MG
     Route: 048

REACTIONS (8)
  - Hypersensitivity [Unknown]
  - Arthritis [Unknown]
  - Osteoporosis [Unknown]
  - Hypophosphataemia [Unknown]
  - Iron deficiency [Unknown]
  - Overdose [Unknown]
  - Drug ineffective [Unknown]
  - Anaemia [Unknown]

NARRATIVE: CASE EVENT DATE: 20090224
